FAERS Safety Report 5482411-9 (Version None)
Quarter: 2007Q4

REPORT INFORMATION
  Report Type: 
  Country: None (occurrence: None)
  Receive Date: 20071011
  Receipt Date: 20071004
  Transmission Date: 20080405
  Serious: Yes (Hospitalization)
  Sender: FDA-Public Use
  Company Number: B0490405A

PATIENT
  Age: 41 Year
  Sex: Male
  Weight: 80 kg

DRUGS (5)
  1. NARATRIPTAN [Suspect]
     Indication: MIGRAINE
     Dosage: 2.5MG SINGLE DOSE
     Route: 048
     Dates: start: 20070723, end: 20070723
  2. TRAMADOL HCL [Suspect]
     Indication: PAIN
     Dosage: 100MG UNKNOWN
     Route: 048
     Dates: start: 20060508
  3. CYCLIZINE [Concomitant]
     Route: 048
     Dates: start: 20070723
  4. ETORICOXIB [Concomitant]
     Route: 048
     Dates: start: 20050223
  5. LANSOPRAZOLE [Concomitant]
     Route: 048
     Dates: start: 20050808

REACTIONS (4)
  - DRUG INTERACTION [None]
  - DYSPHASIA [None]
  - HYPERVENTILATION [None]
  - PARALYSIS [None]
